FAERS Safety Report 8520808-0 (Version None)
Quarter: 2012Q3

REPORT INFORMATION
  Report Type: 
  Country: None (occurrence: None)
  Receive Date: 20120719
  Receipt Date: 20120710
  Transmission Date: 20120928
  Serious: Yes (Other)
  Sender: FDA-Public Use
  Company Number: CA-JNJFOC-20120704929

PATIENT
  Sex: Male
  Weight: 35.3 kg

DRUGS (4)
  1. SOLU-MEDROL [Concomitant]
     Indication: PREMEDICATION
     Route: 042
  2. REMICADE [Suspect]
     Indication: CROHN'S DISEASE
     Route: 042
     Dates: start: 20110418
  3. REMICADE [Suspect]
     Dosage: INFUSION #10
     Route: 042
     Dates: start: 20120710
  4. VITAMIN D [Concomitant]
     Route: 048

REACTIONS (6)
  - DYSPNOEA [None]
  - LACRIMATION INCREASED [None]
  - THROAT TIGHTNESS [None]
  - HYPOAESTHESIA ORAL [None]
  - INFUSION RELATED REACTION [None]
  - ERYTHEMA [None]
